FAERS Safety Report 15750560 (Version 1)
Quarter: 2018Q4

REPORT INFORMATION
  Report Type: Spontaneous
  Country: DE (occurrence: DE)
  Receive Date: 20181221
  Receipt Date: 20181221
  Transmission Date: 20190205
  Serious: Yes (Other)
  Sender: FDA-Public Use
  Company Number: DE-TEVA-2018-DE-991196

PATIENT
  Age: 65 Year
  Sex: Male

DRUGS (1)
  1. COTRIM-FORTE [Suspect]
     Active Substance: SULFAMETHOXAZOLE\TRIMETHOPRIM
     Dosage: INTAKE OF ONE TABLET
     Route: 048

REACTIONS (1)
  - Foreign body aspiration [Unknown]

NARRATIVE: CASE EVENT DATE: 20181219
